FAERS Safety Report 5430375-6 (Version None)
Quarter: 2007Q3

REPORT INFORMATION
  Report Type: 
  Country: None (occurrence: None)
  Receive Date: 20070830
  Receipt Date: 20070823
  Transmission Date: 20080115
  Serious: Yes (Other)
  Sender: FDA-Public Use
  Company Number: DE-JNJFOC-20070804590

PATIENT
  Age: 49 Year
  Sex: Female
  Weight: 45 kg

DRUGS (9)
  1. DOXORUBICIN HCL [Suspect]
     Indication: BREAST CANCER
     Route: 042
  2. OMEPRAZOLE [Concomitant]
     Indication: ULCER
     Route: 065
  3. KEPPRA [Concomitant]
     Indication: EPILEPSY
     Route: 065
  4. METOCLOPRAMIDE [Concomitant]
     Indication: ULCER
     Route: 065
  5. SUMATRIPTAN SUCCINATE [Concomitant]
     Indication: MIGRAINE
     Route: 065
  6. ANAFRANIL [Concomitant]
     Indication: PAIN
     Route: 065
  7. ZOFRAN [Concomitant]
     Indication: NAUSEA
     Route: 065
  8. DEXAMETHASONE [Concomitant]
     Indication: HYPERSENSITIVITY
     Route: 065
  9. DEXAMETHASONE [Concomitant]
     Indication: NAUSEA
     Route: 065

REACTIONS (5)
  - ALANINE AMINOTRANSFERASE INCREASED [None]
  - ASPARTATE AMINOTRANSFERASE INCREASED [None]
  - BLOOD ALKALINE PHOSPHATASE INCREASED [None]
  - FATIGUE [None]
  - GAMMA-GLUTAMYLTRANSFERASE INCREASED [None]
